FAERS Safety Report 11694524 (Version 2)
Quarter: 2015Q4

REPORT INFORMATION
  Report Type: Report from Study
  Country: US (occurrence: US)
  Receive Date: 20151103
  Receipt Date: 20151110
  Transmission Date: 20160304
  Serious: Yes (Hospitalization)
  Sender: FDA-Public Use
  Company Number: US-PFIZER INC-2015366521

PATIENT
  Age: 50 Year
  Sex: Male
  Weight: 100 kg

DRUGS (20)
  1. BLINDED BOCOCIZUMAB [Suspect]
     Active Substance: BOCOCIZUMAB
     Indication: HYPERLIPIDAEMIA
     Dosage: EVERY 2 WEEKS
     Route: 058
     Dates: start: 20150512
  2. BLINDED PF-04950615 [Suspect]
     Active Substance: BOCOCIZUMAB
     Indication: HYPERLIPIDAEMIA
     Dosage: EVERY 2 WEEKS
     Route: 058
     Dates: start: 20150512
  3. BLINDED PLACEBO [Suspect]
     Active Substance: INVESTIGATIONAL PRODUCT
     Indication: HYPERLIPIDAEMIA
     Dosage: EVERY 2 WEEKS
     Route: 058
     Dates: start: 20150512
  4. BLINDED PF-04950615 [Suspect]
     Active Substance: BOCOCIZUMAB
     Indication: DYSLIPIDAEMIA
  5. METOPROLOL TARTRATE. [Concomitant]
     Active Substance: METOPROLOL TARTRATE
     Indication: CORONARY ARTERY DISEASE
     Dosage: 100 MG, 2X/DAY
     Route: 048
     Dates: start: 1997
  6. ASPIRIN. [Concomitant]
     Active Substance: ASPIRIN
     Indication: CORONARY ARTERY DISEASE
     Dosage: 325 MG, 1X/DAY
     Route: 048
     Dates: start: 20150710, end: 20150820
  7. BLINDED BOCOCIZUMAB [Suspect]
     Active Substance: BOCOCIZUMAB
     Indication: DYSLIPIDAEMIA
  8. LIPITOR [Concomitant]
     Active Substance: ATORVASTATIN CALCIUM
     Indication: HYPERLIPIDAEMIA
     Dosage: 80 MG, 1X/DAY
     Route: 048
     Dates: start: 19930101
  9. BLINDED PLACEBO [Suspect]
     Active Substance: INVESTIGATIONAL PRODUCT
     Indication: HYPERLIPIDAEMIA
     Dosage: EVERY 2 WEEKS
     Route: 058
     Dates: start: 20150512
  10. BLINDED PLACEBO [Suspect]
     Active Substance: INVESTIGATIONAL PRODUCT
     Indication: DYSLIPIDAEMIA
  11. PLAVIX [Suspect]
     Active Substance: CLOPIDOGREL BISULFATE
     Indication: CORONARY ARTERY DISEASE
     Dosage: 75 MG, 1X/DAY
     Route: 048
     Dates: start: 1997, end: 20150820
  12. NORVASC [Suspect]
     Active Substance: AMLODIPINE BESYLATE
     Indication: CORONARY ARTERY DISEASE
     Dosage: 2.5 MG, 1X/DAY
     Route: 048
     Dates: start: 20150710, end: 20150820
  13. BLINDED PF-04950615 [Suspect]
     Active Substance: BOCOCIZUMAB
     Indication: HYPERLIPIDAEMIA
     Dosage: EVERY 2 WEEKS
     Route: 058
     Dates: start: 20150512
  14. BLINDED BOCOCIZUMAB [Suspect]
     Active Substance: BOCOCIZUMAB
     Indication: DYSLIPIDAEMIA
  15. BLINDED PF-04950615 [Suspect]
     Active Substance: BOCOCIZUMAB
     Indication: DYSLIPIDAEMIA
  16. BLINDED PLACEBO [Suspect]
     Active Substance: INVESTIGATIONAL PRODUCT
     Indication: DYSLIPIDAEMIA
  17. ZETIA [Concomitant]
     Active Substance: EZETIMIBE
     Indication: HYPERLIPIDAEMIA
     Dosage: 10 MG, 1X/DAY
     Route: 048
     Dates: start: 19930101
  18. WELCHOL [Concomitant]
     Active Substance: COLESEVELAM HYDROCHLORIDE
     Indication: HYPERLIPIDAEMIA
     Dosage: 625 MG, 2X/DAY
     Route: 048
     Dates: start: 19970101
  19. BLINDED BOCOCIZUMAB [Suspect]
     Active Substance: BOCOCIZUMAB
     Indication: HYPERLIPIDAEMIA
     Dosage: EVERY 2 WEEKS
     Route: 058
     Dates: start: 20150512
  20. IMDUR [Concomitant]
     Active Substance: ISOSORBIDE MONONITRATE
     Indication: CORONARY ARTERY DISEASE
     Dosage: 60 MG, 1X/DAY
     Route: 048
     Dates: start: 1993

REACTIONS (1)
  - Angina unstable [Recovered/Resolved]

NARRATIVE: CASE EVENT DATE: 20150827
